FAERS Safety Report 16568741 (Version 1)
Quarter: 2019Q3

REPORT INFORMATION
  Report Type: Spontaneous
  Country: US (occurrence: US)
  Receive Date: 20190713
  Receipt Date: 20190713
  Transmission Date: 20191004
  Serious: Yes (Hospitalization, Other)
  Sender: FDA-Public Use
  Company Number: US-AMGEN-USASP2019109771

PATIENT
  Age: 59 Year
  Sex: Female

DRUGS (8)
  1. NPLATE [Suspect]
     Active Substance: ROMIPLOSTIM
     Dosage: 575 MICROGRAM, QWK
     Route: 065
     Dates: start: 20190606
  2. NPLATE [Suspect]
     Active Substance: ROMIPLOSTIM
     Dosage: 690 MICROGRAM, QWK
     Route: 065
     Dates: start: 20190627
  3. NPLATE [Suspect]
     Active Substance: ROMIPLOSTIM
     Dosage: 690 MICROGRAM, QWK
     Route: 065
     Dates: start: 20190613
  4. NPLATE [Suspect]
     Active Substance: ROMIPLOSTIM
     Dosage: 690 MICROGRAM, QWK
     Route: 065
     Dates: start: 20190620
  5. NPLATE [Suspect]
     Active Substance: ROMIPLOSTIM
     Indication: IMMUNE THROMBOCYTOPENIC PURPURA
     Dosage: 115 MICROGRAM, QWK
     Route: 065
     Dates: start: 20190509
  6. NPLATE [Suspect]
     Active Substance: ROMIPLOSTIM
     Dosage: 230 MICROGRAM, QWK
     Route: 065
     Dates: start: 20190516
  7. NPLATE [Suspect]
     Active Substance: ROMIPLOSTIM
     Dosage: 460 MICROGRAM, QWK
     Route: 065
     Dates: start: 20190530
  8. NPLATE [Suspect]
     Active Substance: ROMIPLOSTIM
     Dosage: 345 MICROGRAM, QWK
     Route: 065
     Dates: start: 20190523

REACTIONS (2)
  - Pulmonary embolism [Unknown]
  - Deep vein thrombosis [Unknown]

NARRATIVE: CASE EVENT DATE: 20190627
